FAERS Safety Report 7094553-5 (Version None)
Quarter: 2010Q4

REPORT INFORMATION
  Report Type: 
  Country: None (occurrence: None)
  Receive Date: 20101110
  Receipt Date: 20101027
  Transmission Date: 20110411
  Serious: Yes (Other)
  Sender: FDA-Public Use
  Company Number: PHHY2010JP73839

PATIENT
  Age: 57 Year
  Sex: Male

DRUGS (2)
  1. TASIGNA [Suspect]
     Indication: CHRONIC MYELOID LEUKAEMIA
     Dosage: 400 MG
     Route: 048
     Dates: start: 20100811
  2. TASIGNA [Suspect]
     Dosage: 800 MG
     Route: 048
     Dates: start: 20100901, end: 20101012

REACTIONS (2)
  - ANGINA PECTORIS [None]
  - CHEST DISCOMFORT [None]
